FAERS Safety Report 11921736 (Version 1)
Quarter: 2016Q1

REPORT INFORMATION
  Report Type: Spontaneous
  Country: CH (occurrence: CH)
  Receive Date: 20160115
  Receipt Date: 20160115
  Transmission Date: 20160526
  Serious: Yes (Death)
  Sender: FDA-Public Use
  Company Number: CH-ASTRAZENECA-2016SE02512

PATIENT
  Age: 67 Year
  Sex: Male

DRUGS (8)
  1. TIROFIBAN [Suspect]
     Active Substance: TIROFIBAN
     Dosage: 600 ?G/H OVER 24 HOURS WAS STARTED.
     Route: 065
  2. ASPIRIN. [Concomitant]
     Active Substance: ASPIRIN
     Indication: ACUTE MYOCARDIAL INFARCTION
  3. TICAGRELOR [Suspect]
     Active Substance: TICAGRELOR
     Indication: ACUTE MYOCARDIAL INFARCTION
     Route: 048
  4. ENOXAPARIN [Concomitant]
     Active Substance: ENOXAPARIN
     Route: 058
  5. TICAGRELOR [Suspect]
     Active Substance: TICAGRELOR
     Indication: ACUTE MYOCARDIAL INFARCTION
     Route: 048
  6. DESMOPRESSIN [Concomitant]
     Active Substance: DESMOPRESSIN
  7. 2 POOLED PLATELET CONCENTRATES [Concomitant]
  8. ASPIRIN. [Concomitant]
     Active Substance: ASPIRIN
     Indication: ACUTE MYOCARDIAL INFARCTION

REACTIONS (5)
  - Subarachnoid haemorrhage [Fatal]
  - Cervical cord compression [Fatal]
  - Autonomic nervous system imbalance [Fatal]
  - Quadriplegia [Fatal]
  - Apnoea [Fatal]
